FAERS Safety Report 8380936-X (Version None)
Quarter: 2012Q2

REPORT INFORMATION
  Report Type: 
  Country: None (occurrence: None)
  Receive Date: 20120523
  Receipt Date: 20120521
  Transmission Date: 20120825
  Serious: Yes (Other)
  Sender: FDA-Public Use
  Company Number: PHHY2012SE043054

PATIENT
  Sex: Female

DRUGS (1)
  1. NEORAL [Suspect]
     Indication: MYOSITIS
     Dosage: 1 ML, DAILY

REACTIONS (3)
  - PRODUCT TASTE ABNORMAL [None]
  - PHARYNGEAL OEDEMA [None]
  - DRUG INEFFECTIVE [None]
